FAERS Safety Report 16494199 (Version 1)
Quarter: 2019Q2

REPORT INFORMATION
  Report Type: Spontaneous
  Country: US (occurrence: US)
  Receive Date: 20190628
  Receipt Date: 20190628
  Transmission Date: 20190711
  Serious: Yes (Death)
  Sender: FDA-Public Use
  Company Number: PHEH2019US027290

PATIENT
  Sex: Female

DRUGS (1)
  1. PROMACTA [Suspect]
     Active Substance: ELTROMBOPAG OLAMINE
     Indication: EMBOLISM VENOUS
     Dosage: 50 MG, QD
     Route: 048
     Dates: start: 201904

REACTIONS (2)
  - Death [Fatal]
  - Product use in unapproved indication [Unknown]
